FAERS Safety Report 14569183 (Version 7)
Quarter: 2018Q3

REPORT INFORMATION
  Report Type: Spontaneous
  Country: DE (occurrence: DE)
  Receive Date: 20180223
  Receipt Date: 20180803
  Transmission Date: 20181010
  Serious: Yes (Other)
  Sender: FDA-Public Use
  Company Number: DE-009507513-1802DEU010397

PATIENT
  Age: 61 Year
  Sex: Female
  Weight: 97 kg

DRUGS (1)
  1. SITAGLIPTIN PHOSPHATE [Suspect]
     Active Substance: SITAGLIPTIN PHOSPHATE
     Indication: TYPE 2 DIABETES MELLITUS
     Dosage: 100 MG, QD
     Route: 048
     Dates: start: 2016

REACTIONS (3)
  - Diabetes mellitus inadequate control [Recovering/Resolving]
  - Temperature perception test abnormal [Unknown]
  - Decreased vibratory sense [Unknown]

NARRATIVE: CASE EVENT DATE: 2016
